FAERS Safety Report 6757634-9 (Version None)
Quarter: 2010Q2

REPORT INFORMATION
  Report Type: 
  Country: None (occurrence: None)
  Receive Date: 20100607
  Receipt Date: 20100526
  Transmission Date: 20101027
  Serious: Yes (Hospitalization)
  Sender: FDA-Public Use
  Company Number: JP-ELI_LILLY_AND_COMPANY-JP201005007504

PATIENT
  Age: 14 Year
  Sex: Female

DRUGS (2)
  1. HUMATROPE [Suspect]
     Indication: GROWTH HORMONE DEFICIENCY
     Dosage: 1 MG, DAILY (1/D)
     Route: 058
     Dates: start: 20091201, end: 20100501
  2. HUMATROPE [Suspect]
     Dosage: 0.5 MG, DAILY (1/D)
     Route: 058
     Dates: start: 20100501

REACTIONS (1)
  - CARDIAC FAILURE [None]
